FAERS Safety Report 9499835 (Version 1)
Quarter: 2013Q1

REPORT INFORMATION
  Report Type: Spontaneous
  Country: US (occurrence: None)
  Receive Date: 20130107
  Receipt Date: 20130107
  Transmission Date: 20140127
  Serious: No
  Sender: FDA-Public Use
  Company Number: PHEH2012US022975

PATIENT
  Sex: Male
  Weight: 72.6 kg

DRUGS (1)
  1. GILENYA [Suspect]
     Route: 048

REACTIONS (3)
  - Dyskinesia [None]
  - Hypoaesthesia [None]
  - Paraesthesia [None]
